FAERS Safety Report 14218006 (Version 1)
Quarter: 2017Q4

REPORT INFORMATION
  Report Type: Report from Study
  Country: MX (occurrence: MX)
  Receive Date: 20171123
  Receipt Date: 20171123
  Transmission Date: 20180321
  Serious: Yes (Other)
  Sender: FDA-Public Use
  Company Number: MX-ROCHE-2024832

PATIENT
  Age: 45 Year
  Sex: Female

DRUGS (5)
  1. HERCEPTIN [Suspect]
     Active Substance: TRASTUZUMAB
     Indication: BREAST CANCER
     Dosage: 7-17 CYCLES OF TREATMENT
     Route: 042
     Dates: start: 2017
  2. DOCETAXEL. [Concomitant]
     Active Substance: DOCETAXEL
     Indication: BREAST CANCER
     Route: 042
     Dates: start: 2017
  3. ACETAMINOPHEN. [Concomitant]
     Active Substance: ACETAMINOPHEN
     Indication: PAIN
     Route: 048
     Dates: start: 2017
  4. HERCEPTIN [Suspect]
     Active Substance: TRASTUZUMAB
     Indication: BREAST CANCER
     Dosage: 7-17 CYCLES OF TREATMENT
     Route: 058
     Dates: start: 2017
  5. CYCLOPHOSPHAMIDE. [Concomitant]
     Active Substance: CYCLOPHOSPHAMIDE
     Indication: BREAST CANCER
     Route: 042
     Dates: start: 2017

REACTIONS (20)
  - Off label use [Unknown]
  - Hair colour changes [Recovered/Resolved]
  - Vomiting [Recovered/Resolved]
  - Mouth ulceration [Recovered/Resolved]
  - Skin fragility [Recovered/Resolved]
  - Alopecia [Recovered/Resolved]
  - Headache [Recovered/Resolved]
  - Parosmia [Recovered/Resolved]
  - Onychoclasis [Recovered/Resolved]
  - Weight decreased [Recovered/Resolved]
  - Immunosuppression [Recovered/Resolved]
  - Paraesthesia [Not Recovered/Not Resolved]
  - Somnolence [Recovered/Resolved]
  - Nail discolouration [Recovered/Resolved]
  - Diarrhoea [Recovered/Resolved]
  - Rash [Recovered/Resolved]
  - Dry skin [Recovered/Resolved]
  - Traumatic haemorrhage [Recovered/Resolved]
  - Asthenia [Recovered/Resolved]
  - Breast pain [Recovered/Resolved]

NARRATIVE: CASE EVENT DATE: 2017
